FAERS Safety Report 8030588 (Version 3)
Quarter: 2013Q3

REPORT INFORMATION
  Report Type: Spontaneous
  Country: US (occurrence: US)
  Receive Date: 20110712
  Receipt Date: 20130917
  Transmission Date: 20140515
  Serious: Yes (Other)
  Sender: FDA-Public Use
  Company Number: US-PFIZER INC-2011152872

PATIENT
  Age: 29 Year
  Sex: Male

DRUGS (3)
  1. CHANTIX [Suspect]
     Indication: SMOKING CESSATION THERAPY
     Dosage: UNK
     Route: 048
     Dates: start: 20060101, end: 20060301
  2. CHANTIX [Suspect]
     Dosage: STARTING MONTH PACK
     Route: 048
     Dates: start: 20061014
  3. CHANTIX [Suspect]
     Dosage: CONTINUING MONTH PACK
     Route: 048
     Dates: start: 20070123

REACTIONS (2)
  - Intentional overdose [Unknown]
  - Suicide attempt [Unknown]
